FAERS Safety Report 17684691 (Version 1)
Quarter: 2020Q2

REPORT INFORMATION
  Report Type: Spontaneous
  Country: FR (occurrence: FR)
  Receive Date: 20200420
  Receipt Date: 20200420
  Transmission Date: 20200714
  Serious: Yes (Death, Hospitalization)
  Sender: FDA-Public Use
  Company Number: FR-BAUSCH-BL-2020-011480

PATIENT
  Age: 78 Year
  Sex: Male

DRUGS (1)
  1. CARTEOLOL HYDROCHLORIDE. [Suspect]
     Active Substance: CARTEOLOL HYDROCHLORIDE
     Indication: INTRAOCULAR PRESSURE INCREASED
     Dosage: BID
     Route: 047
     Dates: start: 20090211, end: 20090213

REACTIONS (6)
  - Coronary artery occlusion [Fatal]
  - Cardiac procedure complication [Fatal]
  - Acute pulmonary oedema [Recovered/Resolved]
  - Fatigue [Unknown]
  - Bradycardia [Unknown]
  - Dyspnoea exertional [Unknown]

NARRATIVE: CASE EVENT DATE: 20090213
